FAERS Safety Report 9856288 (Version 2)
Quarter: 2014Q1

REPORT INFORMATION
  Report Type: Report from Study
  Country: CZ (occurrence: CZ)
  Receive Date: 20140130
  Receipt Date: 20140130
  Transmission Date: 20141002
  Serious: Yes (Hospitalization)
  Sender: FDA-Public Use
  Company Number: CZ-UCBSA-109967

PATIENT
  Age: 53 Year
  Sex: Female

DRUGS (3)
  1. CIMZIA [Suspect]
     Indication: RHEUMATOID ARTHRITIS
     Dates: start: 20130726, end: 20131108
  2. MEDROL [Concomitant]
     Dosage: 8 MG PER DAY
  3. MEDROL [Concomitant]
     Dosage: 16 MG
     Dates: start: 20140114

REACTIONS (2)
  - Nervous system disorder [Not Recovered/Not Resolved]
  - Infection [Recovering/Resolving]
